FAERS Safety Report 7717753-7 (Version None)
Quarter: 2011Q3

REPORT INFORMATION
  Report Type: 
  Country: None (occurrence: None)
  Receive Date: 20110830
  Receipt Date: 20110822
  Transmission Date: 20111222
  Serious: Yes (Other)
  Sender: FDA-Public Use
  Company Number: IT-BRISTOL-MYERS SQUIBB COMPANY-16012585

PATIENT
  Age: 85 Year
  Sex: Male

DRUGS (2)
  1. ERBITUX [Suspect]
     Indication: COLON CANCER
     Route: 042
     Dates: start: 20110419, end: 20110810
  2. XELODA [Concomitant]
     Route: 048
     Dates: start: 20110419, end: 20110810

REACTIONS (1)
  - CARDIAC FAILURE [None]
